FAERS Safety Report 10656364 (Version 1)
Quarter: 2014Q4

REPORT INFORMATION
  Report Type: Spontaneous
  Country: US (occurrence: US)
  Receive Date: 20141216
  Receipt Date: 20141216
  Transmission Date: 20150529
  Serious: Yes (Other)
  Sender: FDA-Public Use
  Company Number: US-TEVA-529071USA

PATIENT
  Age: 11 Year
  Sex: Male

DRUGS (1)
  1. TRAZODONE [Suspect]
     Active Substance: TRAZODONE HYDROCHLORIDE
     Indication: INSOMNIA
     Dates: start: 201410

REACTIONS (4)
  - Product used for unknown indication [Unknown]
  - Product use issue [Unknown]
  - Vomiting [Unknown]
  - Coeliac disease [Not Recovered/Not Resolved]
